FAERS Safety Report 9075051 (Version 1)
Quarter: 2013Q1

REPORT INFORMATION
  Report Type: Spontaneous
  Country: US (occurrence: US)
  Receive Date: 20130129
  Receipt Date: 20130129
  Transmission Date: 20140127
  Serious: No
  Sender: FDA-Public Use
  Company Number: US-BAUSCH-BL-2012-000508

PATIENT
  Age: 56 Year
  Sex: Female

DRUGS (6)
  1. ZYLET (LOTEPREDNOL ETABONATE 0.5% AND TOBRAMYCIN 0.3% OPHTHALMIC SUSPE [Suspect]
     Indication: EYE INFECTION
     Dosage: 1 DROP IN EYE(S); ONCE DAILY
     Route: 047
     Dates: start: 201206, end: 201206
  2. DEXAMFETAMINE SULFATE [Concomitant]
  3. SERTRALINE HYDROCHLORIDE [Concomitant]
  4. ATENOLOL [Concomitant]
     Indication: BLOOD PRESSURE
  5. CALCIUM [Concomitant]
  6. CLONAZEPAM [Concomitant]

REACTIONS (6)
  - Incorrect dose administered [Unknown]
  - Ocular hyperaemia [Recovered/Resolved]
  - Photophobia [Recovered/Resolved]
  - Ocular discomfort [Recovered/Resolved]
  - Foreign body sensation in eyes [Recovered/Resolved]
  - Asthenopia [Recovered/Resolved]
